FAERS Safety Report 18746676 (Version 1)
Quarter: 2021Q1

REPORT INFORMATION
  Report Type: Spontaneous
  Country: US (occurrence: US)
  Receive Date: 20210114
  Receipt Date: 20210114
  Transmission Date: 20210419
  Serious: Yes (Hospitalization)
  Sender: FDA-Public Use
  Company Number: None

PATIENT
  Sex: Female

DRUGS (19)
  1. FOLIC ACID. [Concomitant]
     Active Substance: FOLIC ACID
  2. K?TAB CR ANEMIA [Concomitant]
  3. UNSPECIFIEDLEVOTHYROXIN [Concomitant]
  4. SIMVASTATIN. [Concomitant]
     Active Substance: SIMVASTATIN
  5. VITA?PLUS E [Concomitant]
  6. FUROSEMIDE. [Concomitant]
     Active Substance: FUROSEMIDE
  7. CITRANATAL RX [Concomitant]
     Active Substance: ALPHA-TOCOPHEROL ACETATE\ASCORBIC ACID\CALCIUM CITRATE\CUPRIC OXIDE\DOCUSATE SODIUM\FOLIC ACID\IRON\NIACINAMIDE\POTASSIUM IODIDE\PYRIDOXINE HYDROCHLORIDE\RIBOFLAVIN\THIAMINE\VITAMIN D\ZINC OXIDE
  8. XELJANZ [Suspect]
     Active Substance: TOFACITINIB CITRATE
     Indication: RHEUMATOID ARTHRITIS
     Route: 048
     Dates: start: 20160825
  9. CITALOPRAM [Concomitant]
     Active Substance: CITALOPRAM HYDROBROMIDE
  10. CRUSH VIT C [Concomitant]
  11. NEURONTIN [Concomitant]
     Active Substance: GABAPENTIN
  12. GABAPENTIN. [Concomitant]
     Active Substance: GABAPENTIN
  13. MULTI?VIT [Concomitant]
     Active Substance: VITAMINS
  14. PANTIPRAZOLE [Concomitant]
  15. POT CL MICRO ER [Concomitant]
  16. PREDNISONE. [Concomitant]
     Active Substance: PREDNISONE
  17. VITAMIN D3 [Concomitant]
     Active Substance: CHOLECALCIFEROL
  18. METHOTREXATE. [Concomitant]
     Active Substance: METHOTREXATE
  19. ORPHENADRINE [Concomitant]
     Active Substance: ORPHENADRINE

REACTIONS (2)
  - Pneumonia [None]
  - COVID-19 [None]
